FAERS Safety Report 25060531 (Version 1)
Quarter: 2025Q1

REPORT INFORMATION
  Report Type: Spontaneous
  Country: US (occurrence: US)
  Receive Date: 20250310
  Receipt Date: 20250310
  Transmission Date: 20250409
  Serious: Yes (Death, Other)
  Sender: AMGEN
  Company Number: US-AMGEN-USASP2025042599

PATIENT

DRUGS (5)
  1. PREDNISONE [Suspect]
     Active Substance: PREDNISONE
     Indication: Immunosuppressant drug therapy
     Route: 065
  2. TACROLIMUS [Concomitant]
     Active Substance: TACROLIMUS
     Indication: Immunosuppressant drug therapy
  3. AZATHIOPRINE [Concomitant]
     Active Substance: AZATHIOPRINE
     Indication: Immunosuppressant drug therapy
     Route: 065
  4. MYCOPHENOLATE MOFETIL [Concomitant]
     Active Substance: MYCOPHENOLATE MOFETIL
     Indication: Immunosuppressant drug therapy
     Route: 065
  5. MYCOPHENOLIC ACID [Concomitant]
     Active Substance: MYCOPHENOLIC ACID
     Indication: Immunosuppressant drug therapy
     Route: 065

REACTIONS (18)
  - Transplant rejection [Fatal]
  - Thrombocytopenia [Unknown]
  - Complications of transplanted lung [Unknown]
  - Leukopenia [Unknown]
  - Cytomegalovirus viraemia [Unknown]
  - Bronchiolitis obliterans syndrome [Unknown]
  - Neoplasm malignant [Unknown]
  - Restrictive allograft syndrome [Unknown]
  - Infection [Unknown]
  - Respiratory tract infection [Unknown]
  - Graft loss [Unknown]
  - Haematological infection [Unknown]
  - Anaemia [Unknown]
  - Diarrhoea [Unknown]
  - Abdominal pain [Unknown]
  - Hepatic enzyme abnormal [Unknown]
  - Mental status changes [Unknown]
  - Nausea [Unknown]
